FAERS Safety Report 9152283 (Version 3)
Quarter: 2013Q2

REPORT INFORMATION
  Report Type: Spontaneous
  Country: US (occurrence: US)
  Receive Date: 20130308
  Receipt Date: 20130502
  Transmission Date: 20140414
  Serious: Yes (Other)
  Sender: FDA-Public Use
  Company Number: US-ASTELLAS-2013US002348

PATIENT
  Age: 76 Year
  Sex: Male

DRUGS (7)
  1. XTANDI [Suspect]
     Indication: PROSTATE CANCER METASTATIC
     Dosage: 160 MG, UID/QD
     Route: 048
     Dates: start: 20130123
  2. ZOMETA [Suspect]
     Indication: PRODUCT USED FOR UNKNOWN INDICATION
     Dosage: 4 MG, UNKNOWN/D
     Route: 042
     Dates: start: 2012
  3. ALEVE [Concomitant]
     Indication: PRODUCT USED FOR UNKNOWN INDICATION
     Dosage: 220 MG, UNKNOWN/D
     Route: 065
  4. LUPRON DEPOT [Concomitant]
     Indication: PRODUCT USED FOR UNKNOWN INDICATION
     Dosage: 30 MG, UNKNOWN/D
     Route: 065
  5. ASPIRIN [Concomitant]
     Indication: PRODUCT USED FOR UNKNOWN INDICATION
     Dosage: 325 MG, UNKNOWN/D
     Route: 065
  6. OXYCODONE [Concomitant]
     Indication: PRODUCT USED FOR UNKNOWN INDICATION
     Dosage: 5 MG, UNKNOWN/D
     Route: 065
  7. ATORVASTATIN [Concomitant]
     Indication: PRODUCT USED FOR UNKNOWN INDICATION
     Dosage: 20 MG, UNKNOWN/D
     Route: 065

REACTIONS (9)
  - Blood pressure decreased [Recovered/Resolved]
  - Malignant neoplasm progression [Unknown]
  - Pyrexia [Unknown]
  - Testicular pain [Unknown]
  - Dizziness [Unknown]
  - Heart rate increased [Recovered/Resolved]
  - Arthralgia [Unknown]
  - Insomnia [Unknown]
  - Confusional state [Unknown]
